FAERS Safety Report 16513818 (Version 1)
Quarter: 2019Q3

REPORT INFORMATION
  Report Type: Spontaneous
  Country: US (occurrence: US)
  Receive Date: 20190701
  Receipt Date: 20190701
  Transmission Date: 20191004
  Serious: No
  Sender: FDA-Public Use
  Company Number: US-ROCHE-2218149

PATIENT
  Sex: Female

DRUGS (3)
  1. KLONOPIN [Suspect]
     Active Substance: CLONAZEPAM
     Indication: PRODUCT USED FOR UNKNOWN INDICATION
     Route: 048
     Dates: start: 201804
  2. CLONAZEPAM. [Suspect]
     Active Substance: CLONAZEPAM
     Indication: PRODUCT USED FOR UNKNOWN INDICATION
     Dosage: MYLAN
     Route: 065
  3. CLONAZEPAM (TEVA PHARM) [Suspect]
     Active Substance: CLONAZEPAM
     Indication: PRODUCT USED FOR UNKNOWN INDICATION
     Dosage: TEVA PHARMACEUTICALS
     Route: 065

REACTIONS (6)
  - Headache [Unknown]
  - Fatigue [Unknown]
  - Dizziness [Unknown]
  - Anxiety [Unknown]
  - Palpitations [Unknown]
  - Tremor [Unknown]
